FAERS Safety Report 14588206 (Version 1)
Quarter: 2018Q1

REPORT INFORMATION
  Report Type: Spontaneous
  Country: CA (occurrence: CA)
  Receive Date: 20180301
  Receipt Date: 20180301
  Transmission Date: 20180509
  Serious: Yes (Hospitalization)
  Sender: FDA-Public Use
  Company Number: CA-CELGENEUS-CAN-20180100221

PATIENT
  Age: 47 Year
  Sex: Female

DRUGS (2)
  1. OTEZLA [Suspect]
     Active Substance: APREMILAST
     Indication: PRODUCT USED FOR UNKNOWN INDICATION
     Route: 048
     Dates: start: 20171201
  2. TYLENOL 1 WITH CODEINE [Concomitant]
     Indication: PAIN
     Route: 065

REACTIONS (4)
  - Nausea [Not Recovered/Not Resolved]
  - Localised oedema [Unknown]
  - Vomiting [Not Recovered/Not Resolved]
  - Fall [Unknown]

NARRATIVE: CASE EVENT DATE: 2017
